FAERS Safety Report 17579911 (Version 1)
Quarter: 2020Q1

REPORT INFORMATION
  Report Type: Spontaneous
  Country: FR (occurrence: FR)
  Receive Date: 20200325
  Receipt Date: 20200325
  Transmission Date: 20200409
  Serious: Yes (Hospitalization, Other)
  Sender: FDA-Public Use
  Company Number: FR-GLAXOSMITHKLINE-FR2020048349

PATIENT
  Age: 70 Year
  Sex: Female
  Weight: 75 kg

DRUGS (15)
  1. VALACICLOVIR [Suspect]
     Active Substance: VALACYCLOVIR HYDROCHLORIDE
     Indication: PROPHYLAXIS
     Dosage: 500 MG, QD
     Route: 048
     Dates: start: 20200210, end: 20200217
  2. NATULAN [Suspect]
     Active Substance: PROCARBAZINE HYDROCHLORIDE
     Indication: CENTRAL NERVOUS SYSTEM LYMPHOMA
     Dosage: 200 MG, QD
     Route: 048
     Dates: start: 20200214, end: 20200219
  3. VINCRISTINE SULFATE. [Suspect]
     Active Substance: VINCRISTINE SULFATE
     Indication: CENTRAL NERVOUS SYSTEM LYMPHOMA
     Dosage: 2 MG, SINGLE, IN TOTAL
     Route: 042
     Dates: start: 20200214, end: 20200214
  4. TAHOR [Suspect]
     Active Substance: ATORVASTATIN CALCIUM
     Indication: CARDIOVASCULAR EVENT PROPHYLAXIS
     Dosage: 1 DF, QD
     Route: 048
     Dates: end: 20200217
  5. RITUXIMAB. [Suspect]
     Active Substance: RITUXIMAB
     Indication: CENTRAL NERVOUS SYSTEM LYMPHOMA
     Dosage: 695 MG, SINGLE, IN TOTAL
     Route: 042
     Dates: start: 20200213, end: 20200213
  6. METHOTREXATE. [Suspect]
     Active Substance: METHOTREXATE
     Indication: CENTRAL NERVOUS SYSTEM LYMPHOMA
     Dosage: 6500 MG, SINGLE, IN TOTAL
     Route: 042
     Dates: start: 20200214, end: 20200214
  7. INEXIUM [Concomitant]
     Active Substance: ESOMEPRAZOLE
     Indication: PRODUCT USED FOR UNKNOWN INDICATION
     Dosage: 1 DF, QD
     Route: 048
     Dates: end: 20200221
  8. WELLVONE [Suspect]
     Active Substance: ATOVAQUONE
     Indication: PROPHYLAXIS
     Dosage: 1 DF, QD
     Route: 048
     Dates: start: 20200210, end: 20200217
  9. PREDNISONE. [Suspect]
     Active Substance: PREDNISONE
     Indication: CENTRAL NERVOUS SYSTEM LYMPHOMA
     Dosage: 60 MG, QD
     Route: 048
     Dates: start: 20200214, end: 20200215
  10. SOTALOL HYDROCHLORIDE. [Concomitant]
     Active Substance: SOTALOL HYDROCHLORIDE
     Indication: HYPERTENSION
     Dosage: 320 MG, QD
     Route: 048
  11. ZOPHREN [Suspect]
     Active Substance: ONDANSETRON
     Indication: PROPHYLAXIS OF NAUSEA AND VOMITING
     Dosage: 3 DF, QD
     Route: 048
     Dates: start: 20200214, end: 20200217
  12. METHYLPREDNISOLONE. [Suspect]
     Active Substance: METHYLPREDNISOLONE
     Indication: CENTRAL NERVOUS SYSTEM LYMPHOMA
     Dosage: 40 MG, SINGLE, IN TOTAL
     Route: 042
     Dates: start: 20200213, end: 20200213
  13. LEXOMIL [Concomitant]
     Active Substance: BROMAZEPAM
     Indication: PRODUCT USED FOR UNKNOWN INDICATION
     Dosage: 6 MG, QD
     Route: 048
     Dates: end: 20200221
  14. ALDACTAZINE [Concomitant]
     Active Substance: ALTHIAZIDE\SPIRONOLACTONE
     Indication: HYPERTENSION
     Dosage: 1 DF, QD
     Route: 048
  15. PREVISCAN (FLUINDIONE) [Concomitant]
     Active Substance: FLUINDIONE
     Indication: THROMBOSIS PROPHYLAXIS
     Dosage: 1 DF, QD
     Route: 048
     Dates: end: 20200207

REACTIONS (1)
  - Hepatocellular injury [Recovering/Resolving]

NARRATIVE: CASE EVENT DATE: 20200217
